FAERS Safety Report 4562750-6 (Version None)
Quarter: 2005Q1

REPORT INFORMATION
  Report Type: 
  Country: None (occurrence: None)
  Receive Date: 20050127
  Receipt Date: 20050120
  Transmission Date: 20050727
  Serious: Yes (Other)
  Sender: FDA-Public Use
  Company Number: PHNU2005DE00610

PATIENT
  Age: 70 Year
  Sex: Female
  Weight: 84 kg

DRUGS (11)
  1. DICLOFENAC [Suspect]
     Indication: DIAGNOSTIC PROCEDURE
     Dosage: 0.1ML OF SOLUTION WITH 25MG/ML
     Dates: start: 20040115
  2. RANITIDINE [Concomitant]
  3. CLEMASTINE [Concomitant]
  4. PREDNISOLONE [Concomitant]
  5. TYLENOL [Concomitant]
     Indication: DIAGNOSTIC PROCEDURE
     Dosage: UNK, UNK
     Dates: start: 20040115
  6. MEPIVACAINE [Concomitant]
     Indication: DIAGNOSTIC PROCEDURE
     Dates: start: 20040115
  7. ACERCOMP [Concomitant]
     Indication: HYPERTENSION
     Dosage: 1 DF, QD
  8. AMILORIDE [Concomitant]
     Dosage: 1 DF, QD
  9. BELOC ZOK [Concomitant]
     Dosage: 0.5 DF, QD
  10. PLAVIX [Concomitant]
     Dosage: 1 DF, QD
  11. LOVASTATIN [Concomitant]
     Indication: LIPID METABOLISM DISORDER
     Dosage: 0.5 DF, QD

REACTIONS (5)
  - BLOOD PRESSURE DECREASED [None]
  - CIRCULATORY COLLAPSE [None]
  - ENURESIS [None]
  - PRURITUS [None]
  - SHOCK [None]
